FAERS Safety Report 15350581 (Version 1)
Quarter: 2018Q3

REPORT INFORMATION
  Report Type: Spontaneous
  Country: US (occurrence: US)
  Receive Date: 20180905
  Receipt Date: 20180905
  Transmission Date: 20181010
  Serious: Yes (Other)
  Sender: FDA-Public Use
  Company Number: US-APOTEX-2018AP020170

PATIENT
  Age: 14 Year
  Sex: Female

DRUGS (1)
  1. SERTRALINE [Suspect]
     Active Substance: SERTRALINE HYDROCHLORIDE
     Indication: SELECTIVE EATING DISORDER
     Dosage: 50 MG, DAILY
     Route: 065

REACTIONS (3)
  - Suicidal ideation [Unknown]
  - Agitation [Unknown]
  - Activation syndrome [Unknown]
